FAERS Safety Report 24113883 (Version 1)
Quarter: 2024Q3

REPORT INFORMATION
  Report Type: Spontaneous
  Country: NL (occurrence: NL)
  Receive Date: 20240720
  Receipt Date: 20240720
  Transmission Date: 20241016
  Serious: Yes (Congenital Anomaly, Other)
  Sender: AUROBINDO
  Company Number: NL-LRB-00981718

PATIENT
  Sex: Male
  Weight: 4 kg

DRUGS (1)
  1. PAROXETINE [Suspect]
     Active Substance: PAROXETINE
     Indication: Anxiety
     Dosage: 20 MILLIGRAM, ONCE A DAY
     Route: 065
     Dates: start: 20121201

REACTIONS (2)
  - Fallot^s tetralogy [Unknown]
  - Maternal exposure during pregnancy [Unknown]
